FAERS Safety Report 18792314 (Version 1)
Quarter: 2021Q1

REPORT INFORMATION
  Report Type: Spontaneous
  Country: PR (occurrence: PR)
  Receive Date: 20210127
  Receipt Date: 20210127
  Transmission Date: 20210419
  Serious: Yes (Other)
  Sender: FDA-Public Use
  Company Number: PR-ROCHE-2753011

PATIENT
  Age: 11 Year
  Sex: Female

DRUGS (1)
  1. EVRYSDI [Suspect]
     Active Substance: RISDIPLAM
     Indication: SPINAL MUSCULAR ATROPHY
     Dosage: 6.6 ML
     Route: 050
     Dates: start: 20201210

REACTIONS (1)
  - Gastrointestinal haemorrhage [Unknown]

NARRATIVE: CASE EVENT DATE: 20210118
